FAERS Safety Report 23271628 (Version 1)
Quarter: 2023Q4

REPORT INFORMATION
  Report Type: Report from Study
  Country: CO (occurrence: CO)
  Receive Date: 20231207
  Receipt Date: 20231207
  Transmission Date: 20240109
  Serious: Yes (Other)
  Sender: FDA-Public Use
  Company Number: CO-JNJFOC-20231025559

PATIENT
  Age: 35 Year
  Sex: Female
  Weight: 84 kg

DRUGS (1)
  1. SIMPONI [Suspect]
     Active Substance: GOLIMUMAB
     Indication: Ankylosing spondylitis
     Dosage: LAST DRUG APPLICATION: 17-NOV-2023.
     Route: 058
     Dates: start: 20200331

REACTIONS (10)
  - Hepatitis [Unknown]
  - Colitis [Unknown]
  - Hepatic pain [Not Recovered/Not Resolved]
  - Hepatomegaly [Not Recovered/Not Resolved]
  - Mononeuropathy [Unknown]
  - Asthenia [Unknown]
  - Immune system disorder [Not Recovered/Not Resolved]
  - Cough [Not Recovered/Not Resolved]
  - Tonsillar disorder [Not Recovered/Not Resolved]
  - Oropharyngeal plaque [Not Recovered/Not Resolved]

NARRATIVE: CASE EVENT DATE: 20230901
